FAERS Safety Report 19004503 (Version 1)
Quarter: 2021Q1

REPORT INFORMATION
  Report Type: Report from Study
  Country: BR (occurrence: BR)
  Receive Date: 20210312
  Receipt Date: 20210312
  Transmission Date: 20210420
  Serious: Yes (Hospitalization)
  Sender: FDA-Public Use
  Company Number: BR-TAKEDA-BR202013904

PATIENT
  Age: 57 Year
  Sex: Female
  Weight: 71 kg

DRUGS (8)
  1. IDURSULFASE [Suspect]
     Active Substance: IDURSULFASE
     Dosage: 4 VIALS, Q2WEEKS
     Route: 042
  2. ATENOLOL. [Concomitant]
     Active Substance: ATENOLOL
     Indication: PRODUCT USED FOR UNKNOWN INDICATION
     Route: 065
  3. HEMAX [Concomitant]
     Indication: HAEMODIALYSIS
     Route: 065
  4. ACICLOVIR [Concomitant]
     Active Substance: ACYCLOVIR
     Dosage: UNK UNK, BID
     Route: 050
  5. FOLIC ACID. [Concomitant]
     Active Substance: FOLIC ACID
     Indication: VITAMIN SUPPLEMENTATION
     Route: 065
  6. PURAN [Concomitant]
     Active Substance: LEVOTHYROXINE SODIUM
     Indication: HYPOTHYROIDISM
     Route: 065
  7. IDURSULFASE [Suspect]
     Active Substance: IDURSULFASE
     Indication: FABRY^S DISEASE
     Dosage: 4 DOSAGE FORM
     Route: 065
  8. ALLOPURINOL. [Concomitant]
     Active Substance: ALLOPURINOL
     Indication: PRODUCT USED FOR UNKNOWN INDICATION
     Route: 065

REACTIONS (7)
  - Product dose omission issue [Unknown]
  - Renal transplant [Recovered/Resolved]
  - Off label use [Unknown]
  - Viral infection [Unknown]
  - Inappropriate schedule of product administration [Unknown]
  - Haemodialysis [Recovered/Resolved]
  - Product availability issue [Unknown]

NARRATIVE: CASE EVENT DATE: 202002
